FAERS Safety Report 4791684-7 (Version None)
Quarter: 2005Q4

REPORT INFORMATION
  Report Type: 
  Country: None (occurrence: None)
  Receive Date: 20051007
  Receipt Date: 20051005
  Transmission Date: 20060501
  Serious: Yes (Other)
  Sender: FDA-Public Use
  Company Number: US-GLAXOSMITHKLINE-A0577206A

PATIENT
  Age: 60 Year
  Sex: Male

DRUGS (4)
  1. COREG [Suspect]
     Dosage: 12.5MG PER DAY
     Route: 048
     Dates: start: 20050101
  2. ACCUPRIL [Concomitant]
  3. VYTORIN [Concomitant]
  4. ASPIRIN [Concomitant]

REACTIONS (3)
  - HYPOGLYCAEMIA [None]
  - INCREASED APPETITE [None]
  - WEIGHT INCREASED [None]
